FAERS Safety Report 9068367 (Version 1)
Quarter: 2013Q1

REPORT INFORMATION
  Report Type: Spontaneous
  Country: IT (occurrence: IT)
  Receive Date: 20130206
  Receipt Date: 20130206
  Transmission Date: 20140127
  Serious: Yes (Hospitalization)
  Sender: FDA-Public Use
  Company Number: IT-BAYER-2013-009369

PATIENT
  Age: 76 Year
  Sex: Male

DRUGS (7)
  1. CARDIOASPIRIN [Suspect]
     Dosage: 100 MG, QD
     Route: 048
     Dates: start: 20100101, end: 20130112
  2. COUMADIN [Suspect]
     Indication: ATRIAL FIBRILLATION
     Dosage: DAILY DOSE 1 DF
     Route: 048
     Dates: start: 20120101, end: 20130112
  3. INSULIN [Concomitant]
     Dosage: UNK
  4. BISOPROLOL [Concomitant]
     Dosage: UNK
  5. CYMBALTA [Concomitant]
     Dosage: UNK
  6. PEPTAZOL [Concomitant]
     Dosage: UNK
  7. TRIATEC [Concomitant]
     Dosage: UNK

REACTIONS (2)
  - Hypertensive crisis [Recovering/Resolving]
  - Epistaxis [Recovering/Resolving]
